FAERS Safety Report 8135008-6 (Version None)
Quarter: 2012Q1

REPORT INFORMATION
  Report Type: 
  Country: None (occurrence: None)
  Receive Date: 20120214
  Receipt Date: 20120203
  Transmission Date: 20120608
  Serious: Yes (Hospitalization, Other)
  Sender: FDA-Public Use
  Company Number: DE-BRISTOL-MYERS SQUIBB COMPANY-16392466

PATIENT
  Age: 56 Year
  Sex: Male
  Weight: 87 kg

DRUGS (5)
  1. CISPLATIN [Suspect]
     Indication: OESOPHAGEAL CARCINOMA
     Dosage: EVERY 3-4WEEKS. MOST RECENT INFU:25JAN12
     Route: 042
     Dates: start: 20111209
  2. MAGNESIUM [Concomitant]
     Route: 048
  3. DOCETAXEL [Suspect]
     Indication: OESOPHAGEAL CARCINOMA
     Dosage: EVERY 3-4WEEKS. MOST RECENT INFU:25JAN12
     Route: 042
     Dates: start: 20111209
  4. PANTOPRAZOLE [Concomitant]
     Route: 048
  5. CETUXIMAB [Suspect]
     Indication: OESOPHAGEAL CARCINOMA
     Dosage: MOST RECENT INFU:31JAN12
     Route: 042
     Dates: start: 20111209

REACTIONS (1)
  - PULMONARY EMBOLISM [None]
